FAERS Safety Report 7083681-6 (Version None)
Quarter: 2010Q4

REPORT INFORMATION
  Report Type: 
  Country: None (occurrence: None)
  Receive Date: 20101104
  Receipt Date: 20100927
  Transmission Date: 20110411
  Serious: Yes (Other)
  Sender: FDA-Public Use
  Company Number: US-GENZYME-CAMP-1001045

PATIENT
  Sex: Male

DRUGS (3)
  1. CAMPATH [Suspect]
     Indication: CHRONIC LYMPHOCYTIC LEUKAEMIA
     Dosage: 3 MG, UNK
     Route: 065
     Dates: start: 20100913
  2. CAMPATH [Suspect]
     Dosage: 10 MG, UNK
     Route: 065
  3. CAMPATH [Suspect]
     Dosage: 30 MG, UNK
     Route: 065

REACTIONS (1)
  - HEPATIC ENZYME INCREASED [None]
